FAERS Safety Report 15420845 (Version 1)
Quarter: 2018Q3

REPORT INFORMATION
  Report Type: Spontaneous
  Country: US (occurrence: US)
  Receive Date: 20180924
  Receipt Date: 20180924
  Transmission Date: 20181010
  Serious: No
  Sender: FDA-Public Use
  Company Number: US-ALLERGAN-1809119US

PATIENT
  Age: 58 Year
  Sex: Male

DRUGS (3)
  1. ENEMA (SODIUM PHOSPHATE, DIBASIC\SODIUM PHOSPHATE, MONOBASIC) [Concomitant]
     Active Substance: SODIUM PHOSPHATE, DIBASIC\SODIUM PHOSPHATE, MONOBASIC
     Indication: CONSTIPATION
     Dosage: UNK, UNK, QD
     Route: 054
  2. AMITIZA [Concomitant]
     Active Substance: LUBIPROSTONE
     Indication: CONSTIPATION
     Dosage: 8 ?G, QD
     Route: 048
  3. LINZESS [Suspect]
     Active Substance: LINACLOTIDE
     Indication: IRRITABLE BOWEL SYNDROME
     Dosage: 72 ?G, QD
     Route: 048
     Dates: start: 20180212, end: 20180225

REACTIONS (2)
  - Diarrhoea [Unknown]
  - Off label use [Unknown]
